FAERS Safety Report 22037746 (Version 2)
Quarter: 2023Q1

REPORT INFORMATION
  Report Type: Report from Study
  Country: IL (occurrence: IL)
  Receive Date: 20230227
  Receipt Date: 20230317
  Transmission Date: 20230418
  Serious: Yes (Hospitalization, Other)
  Sender: FDA-Public Use
  Company Number: IL-ABBVIE-4317522

PATIENT
  Age: 71 Year
  Sex: Male

DRUGS (2)
  1. CARBIDOPA\LEVODOPA [Suspect]
     Active Substance: CARBIDOPA\LEVODOPA
     Indication: Parkinson^s disease
     Route: 050
     Dates: start: 20220109
  2. CARBIDOPA\LEVODOPA [Suspect]
     Active Substance: CARBIDOPA\LEVODOPA
     Dosage: CURRENT: MORNING 13.0 ML, CONTINUOUS DAY 4.3 ML/HOUR, EXTRA 2.5 ML THERAPY DURATION 16 H
     Route: 050

REACTIONS (2)
  - Fall [Recovered/Resolved]
  - Hip fracture [Recovering/Resolving]

NARRATIVE: CASE EVENT DATE: 20230221
